FAERS Safety Report 23951591 (Version 1)
Quarter: 2024Q2

REPORT INFORMATION
  Report Type: Spontaneous
  Country: US (occurrence: US)
  Receive Date: 20240607
  Receipt Date: 20240607
  Transmission Date: 20240717
  Serious: No
  Sender: FDA-Public Use
  Company Number: US-PFIZER INC-202400188457

PATIENT
  Age: 62 Year
  Sex: Female

DRUGS (1)
  1. INLYTA [Suspect]
     Active Substance: AXITINIB
     Dosage: 1 MG, 2X/DAY (TAKE 3 TABLETS TWICE A DAY BY MOUTH)
     Route: 048
     Dates: start: 20220616

REACTIONS (9)
  - Nausea [Unknown]
  - Diarrhoea [Unknown]
  - Abdominal pain upper [Unknown]
  - Skin lesion [Unknown]
  - Urticaria [Unknown]
  - Rash [Unknown]
  - Decreased appetite [Unknown]
  - Asthenia [Unknown]
  - Quality of life decreased [Unknown]
